FAERS Safety Report 9260829 (Version 1)
Quarter: 2013Q2

REPORT INFORMATION
  Report Type: Spontaneous
  Country: AT (occurrence: AT)
  Receive Date: 20130429
  Receipt Date: 20130429
  Transmission Date: 20140414
  Serious: Yes (Life-Threatening, Other)
  Sender: FDA-Public Use
  Company Number: AT-ABBOTT-13X-009-1082425-00

PATIENT
  Age: 73 Year
  Sex: Male

DRUGS (8)
  1. VALPROIC ACID [Suspect]
     Indication: PARTIAL SEIZURES
     Dates: start: 2012
  2. PHENYTOIN [Suspect]
     Indication: PARTIAL SEIZURES
     Dates: end: 201202
  3. CARBAMAZEPINE [Concomitant]
     Indication: PRODUCT USED FOR UNKNOWN INDICATION
  4. CLONAZEPAM [Concomitant]
     Indication: PRODUCT USED FOR UNKNOWN INDICATION
  5. LEVETIRACETAM [Concomitant]
     Indication: PRODUCT USED FOR UNKNOWN INDICATION
     Dates: start: 2002
  6. TOPIRAMATE [Concomitant]
     Indication: PRODUCT USED FOR UNKNOWN INDICATION
  7. LACOSAMIDE [Concomitant]
     Indication: PRODUCT USED FOR UNKNOWN INDICATION
  8. TEMOZOLOMIDE [Concomitant]
     Indication: PRODUCT USED FOR UNKNOWN INDICATION

REACTIONS (9)
  - Pneumonia aspiration [Unknown]
  - Hyperammonaemic encephalopathy [Unknown]
  - Somnolence [Unknown]
  - Stupor [Unknown]
  - Dysphagia [Unknown]
  - Gait disturbance [Unknown]
  - Condition aggravated [Unknown]
  - Drug ineffective [Unknown]
  - Neoplasm progression [Unknown]
